FAERS Safety Report 16821780 (Version 1)
Quarter: 2019Q3

REPORT INFORMATION
  Report Type: Spontaneous
  Country: US (occurrence: US)
  Receive Date: 20190918
  Receipt Date: 20190918
  Transmission Date: 20191005
  Serious: Yes (Hospitalization)
  Sender: FDA-Public Use
  Company Number: US-AMNEAL PHARMACEUTICALS-2019-AMRX-01895

PATIENT
  Age: 26 Year
  Sex: Female

DRUGS (1)
  1. DIGOXIN. [Suspect]
     Active Substance: DIGOXIN
     Indication: ACCIDENTAL EXPOSURE TO PRODUCT
     Dosage: 250 MICROGRAM
     Route: 008

REACTIONS (4)
  - Status epilepticus [Recovered/Resolved]
  - Encephalopathy [Recovered/Resolved]
  - Meningitis chemical [Recovered/Resolved]
  - Accidental exposure to product [Recovered/Resolved]
